FAERS Safety Report 9265610 (Version 2)
Quarter: 2013Q2

REPORT INFORMATION
  Report Type: Spontaneous
  Country: ES (occurrence: ES)
  Receive Date: 20130501
  Receipt Date: 20130507
  Transmission Date: 20140414
  Serious: Yes (Death, Life-Threatening, Hospitalization)
  Sender: FDA-Public Use
  Company Number: ES-VERTEX PHARMACEUTICALS INC-2013-005583

PATIENT
  Age: 40 Year
  Sex: Male

DRUGS (6)
  1. INCIVO [Suspect]
     Indication: HEPATITIS C
     Dosage: 2250 MG, QD
     Route: 048
     Dates: start: 20120525, end: 20120720
  2. RIBAVIRIN [Suspect]
     Indication: HEPATITIS C
     Dosage: DOSAGE FORM: UNKNOWN
     Route: 048
  3. RIBAVIRIN [Suspect]
     Dosage: DOSAGE FORM: UNKNOWN
     Route: 048
     Dates: start: 20120525, end: 20120730
  4. PEGINTERFERON ALFA 2A [Suspect]
     Indication: HEPATITIS C
     Dosage: DOSAGE FORM: UNSPECIFIED
     Route: 058
     Dates: start: 20120528, end: 20120730
  5. AMCHAFIBRIN [Suspect]
     Indication: HEPATITIS C
     Dosage: DOSAGE FORM: UNSPECIFIED
     Route: 048
     Dates: start: 2012, end: 20120730
  6. KOGENATE [Suspect]
     Indication: FACTOR VIII DEFICIENCY
     Dosage: DOSAGE FORM: UNSPECIFIED
     Route: 042
     Dates: start: 2012, end: 20120730

REACTIONS (5)
  - Portal vein thrombosis [Fatal]
  - Hepatic encephalopathy [Fatal]
  - Respiratory failure [Fatal]
  - Renal failure acute [Fatal]
  - Anaemia [Recovered/Resolved]
